FAERS Safety Report 5772969-4 (Version None)
Quarter: 2008Q2

REPORT INFORMATION
  Report Type: 
  Country: None (occurrence: None)
  Receive Date: 20080613
  Receipt Date: 20080603
  Transmission Date: 20081010
  Serious: Yes (Other)
  Sender: FDA-Public Use
  Company Number: JP-PFIZER INC-2008047730

PATIENT
  Age: 29 Year
  Sex: Female

DRUGS (1)
  1. CHANTIX [Suspect]
     Indication: SMOKING CESSATION THERAPY
     Dosage: DAILY DOSE:1MG
     Route: 048

REACTIONS (5)
  - CONSTIPATION [None]
  - FACE OEDEMA [None]
  - HOT FLUSH [None]
  - MALAISE [None]
  - RASH [None]
